FAERS Safety Report 9441529 (Version 1)
Quarter: 2013Q3

REPORT INFORMATION
  Report Type: Report from Study
  Country: US (occurrence: US)
  Receive Date: 20130805
  Receipt Date: 20130805
  Transmission Date: 20140515
  Serious: Yes (Other)
  Sender: FDA-Public Use
  Company Number: US-ROCHE-1256461

PATIENT
  Age: 61 Year
  Sex: Female

DRUGS (10)
  1. XOLAIR [Suspect]
     Indication: ASTHMA
     Route: 058
  2. ALBUTEROL INHALER [Concomitant]
     Route: 055
  3. IPRATROPIUM BROMIDE [Concomitant]
     Route: 045
  4. ALLEGRA [Concomitant]
     Route: 065
  5. XYZAL [Concomitant]
     Route: 065
  6. SINGULAIR [Concomitant]
     Route: 065
  7. EPIPEN [Concomitant]
     Dosage: 0.3 MG/0.3 ML
     Route: 065
  8. PRILOSEC [Concomitant]
     Dosage: TAKE 30-60MIN PRIOR TO EATING
     Route: 065
  9. PREDNISONE [Concomitant]
     Dosage: FOR 3 DAYS, 2 TABS FOR 3 DAYS AND 1 TAB FOR 3 DAYS
     Route: 065
  10. ZOLOFT [Concomitant]
     Route: 065

REACTIONS (18)
  - Hypertension [Unknown]
  - Sinusitis [Unknown]
  - Bronchopulmonary aspergillosis allergic [Unknown]
  - Sputum discoloured [Unknown]
  - Anxiety [Unknown]
  - Dyspnoea [Unknown]
  - Wheezing [Unknown]
  - Cough [Unknown]
  - Nasal discharge discolouration [Unknown]
  - Chest discomfort [Unknown]
  - Sensation of pressure [Unknown]
  - Facial pain [Unknown]
  - Nasal congestion [Unknown]
  - Fatigue [Unknown]
  - Rhinorrhoea [Unknown]
  - Oropharyngeal pain [Unknown]
  - Dysphonia [Unknown]
  - Obstruction [Unknown]
